FAERS Safety Report 14630815 (Version 1)
Quarter: 2018Q1

REPORT INFORMATION
  Report Type: Spontaneous
  Country: US (occurrence: US)
  Receive Date: 20180313
  Receipt Date: 20180313
  Transmission Date: 20180509
  Serious: No
  Sender: FDA-Public Use
  Company Number: US-009507513-1803USA005037

PATIENT
  Age: 75 Year
  Sex: Male

DRUGS (1)
  1. ZOCOR [Suspect]
     Active Substance: SIMVASTATIN
     Dosage: UNK
     Route: 048

REACTIONS (5)
  - Arthralgia [Unknown]
  - Asthenia [Unknown]
  - Malaise [Unknown]
  - Myalgia [Unknown]
  - Fatigue [Unknown]
